FAERS Safety Report 7460072-7 (Version None)
Quarter: 2011Q2

REPORT INFORMATION
  Report Type: 
  Country: None (occurrence: None)
  Receive Date: 20110505
  Receipt Date: 20110425
  Transmission Date: 20111010
  Serious: Yes (Hospitalization)
  Sender: FDA-Public Use
  Company Number: PHHY2011US34979

PATIENT
  Sex: Female
  Weight: 75.283 kg

DRUGS (1)
  1. EXJADE [Suspect]
     Dosage: 3 DF, QD
     Route: 048
     Dates: start: 20101220

REACTIONS (3)
  - URINARY TRACT INFECTION [None]
  - HAEMATOCHEZIA [None]
  - DIARRHOEA [None]
